FAERS Safety Report 9563164 (Version 1)
Quarter: 2013Q3

REPORT INFORMATION
  Report Type: Spontaneous
  Country: US (occurrence: US)
  Receive Date: 20130927
  Receipt Date: 20130927
  Transmission Date: 20140515
  Serious: No
  Sender: FDA-Public Use
  Company Number: US-BRISTOL-MYERS SQUIBB COMPANY-18720003

PATIENT
  Age: 70 Year
  Sex: Male

DRUGS (6)
  1. ONGLYZA TABS 5 MG [Suspect]
     Indication: TYPE 2 DIABETES MELLITUS
     Dates: start: 20130320
  2. GLIPIZIDE [Concomitant]
  3. OMEPRAZOLE [Concomitant]
  4. LOVASTATIN [Concomitant]
  5. LOSARTAN [Concomitant]
  6. METFORMIN [Concomitant]

REACTIONS (1)
  - Dizziness [Unknown]
